FAERS Safety Report 8062600-X (Version None)
Quarter: 2012Q1

REPORT INFORMATION
  Report Type: 
  Country: None (occurrence: None)
  Receive Date: 20120123
  Receipt Date: 20120110
  Transmission Date: 20120608
  Serious: Yes (Other)
  Sender: FDA-Public Use
  Company Number: TN-ASTELLAS-2011EU002329

PATIENT
  Age: 38 Year
  Sex: Male

DRUGS (6)
  1. TACROLIMUS [Interacting]
     Dosage: 8 MG, UNKNOWN/D
     Route: 065
  2. THEOPHYLLINE [Interacting]
     Dosage: 300 MG, UNKNOWN/D
     Route: 065
     Dates: start: 20090617
  3. TACROLIMUS [Interacting]
     Indication: RENAL TRANSPLANT
     Dosage: 10 MG, UNKNOWN/D
     Route: 065
  4. MYCOPHENOLIC ACID [Suspect]
     Indication: RENAL TRANSPLANT
     Dosage: 1500 MG, UNKNOWN/D
     Route: 065
  5. TACROLIMUS [Interacting]
     Dosage: 2 MG, UNKNOWN/D
     Route: 065
  6. PREDNISONE [Suspect]
     Indication: RENAL TRANSPLANT
     Dosage: 10 MG, UNKNOWN/D
     Route: 065

REACTIONS (3)
  - DRUG INTERACTION [None]
  - IMMUNOSUPPRESSANT DRUG LEVEL INCREASED [None]
  - RENAL IMPAIRMENT [None]
